FAERS Safety Report 19630581 (Version 2)
Quarter: 2021Q3

REPORT INFORMATION
  Report Type: Spontaneous
  Country: US (occurrence: US)
  Receive Date: 20210728
  Receipt Date: 20210730
  Transmission Date: 20211014
  Serious: No
  Sender: FDA-Public Use
  Company Number: US-SA-2021SA245619

PATIENT
  Age: 22 Year
  Sex: Male

DRUGS (3)
  1. DUPIXENT [Suspect]
     Active Substance: DUPILUMAB
     Indication: DERMATITIS ATOPIC
     Dosage: 300 MG, QOW
     Route: 058
     Dates: start: 20190625
  2. LIDOCAINE. [Concomitant]
     Active Substance: LIDOCAINE
  3. ACETAMIN [Concomitant]
     Active Substance: ACETAMINOPHEN

REACTIONS (6)
  - Sleep disorder [Recovered/Resolved]
  - Rash [Recovered/Resolved]
  - Dermatitis atopic [Recovered/Resolved]
  - Product dose omission issue [Unknown]
  - Discomfort [Recovered/Resolved]
  - Skin irritation [Recovered/Resolved]

NARRATIVE: CASE EVENT DATE: 202106
